FAERS Safety Report 10204581 (Version 1)
Quarter: 2014Q2

REPORT INFORMATION
  Report Type: Spontaneous
  Country: US (occurrence: US)
  Receive Date: 20140529
  Receipt Date: 20140529
  Transmission Date: 20141212
  Serious: No
  Sender: FDA-Public Use
  Company Number: US-MYLANLABS-2013S1028287

PATIENT
  Age: 65 Year
  Sex: Male
  Weight: 81.65 kg

DRUGS (5)
  1. ALBUTEROL SULFATE INHALATION SOLUTION [Suspect]
     Indication: ASTHMA
     Route: 055
  2. ALBUTEROL SULFATE INHALATION SOLUTION [Suspect]
     Indication: CHRONIC OBSTRUCTIVE PULMONARY DISEASE
     Route: 055
  3. ALBUTEROL SULFATE INHALATION SOLUTION [Suspect]
     Indication: EMPHYSEMA
     Route: 055
  4. ADVAIR [Concomitant]
     Indication: ASTHMA
     Dosage: OTHER INDICATIONS: COPD, EMPHYSEMA
  5. SPIRIVA [Concomitant]
     Indication: ASTHMA
     Dosage: OTHER INDICATIONS: COPD AND EMPHYSEMA

REACTIONS (2)
  - Drug ineffective [Recovered/Resolved]
  - Dyspnoea [Recovered/Resolved]
